FAERS Safety Report 16323681 (Version 3)
Quarter: 2019Q3

REPORT INFORMATION
  Report Type: Spontaneous
  Country: JP (occurrence: JP)
  Receive Date: 20190517
  Receipt Date: 20190716
  Transmission Date: 20191004
  Serious: Yes (Hospitalization, Other)
  Sender: FDA-Public Use
  Company Number: JP-GLAXOSMITHKLINE-JP2019JPN084613

PATIENT
  Age: 80 Year
  Sex: Male
  Weight: 49 kg

DRUGS (17)
  1. ZYLORIC [Suspect]
     Active Substance: ALLOPURINOL
     Indication: HYPERURICAEMIA
     Dosage: 100 MG, QD
     Route: 048
  2. OLMETEC OD TABLETS [Concomitant]
     Indication: HYPERTENSION
     Dosage: 20 MG, QD
     Route: 048
  3. LAMICTAL [Suspect]
     Active Substance: LAMOTRIGINE
     Indication: EPILEPSY
     Dosage: 25 MG, QD
     Route: 048
     Dates: start: 20161107, end: 20161120
  4. LAMICTAL [Suspect]
     Active Substance: LAMOTRIGINE
     Dosage: 100 MG, 1D
     Route: 048
     Dates: start: 20161212, end: 20170305
  5. LAMICTAL [Suspect]
     Active Substance: LAMOTRIGINE
     Dosage: 200 MG, 1D
     Route: 048
     Dates: start: 20170327, end: 20190203
  6. GABAPEN [Concomitant]
     Active Substance: GABAPENTIN
     Indication: EPILEPSY
     Dosage: 200 MG, QD
     Route: 048
  7. LAMICTAL [Suspect]
     Active Substance: LAMOTRIGINE
     Dosage: 50 MG, QD
     Route: 048
     Dates: start: 20161121, end: 20161211
  8. ZETIA TABLETS [Concomitant]
     Indication: HYPERCHOLESTEROLAEMIA
     Dosage: 10 MG, QD
     Route: 048
  9. LIVALO TABLETS [Concomitant]
     Dosage: 2 MG, QD
     Route: 048
  10. JUVELA TABLETS [Concomitant]
     Dosage: 50 MG, TID
     Route: 048
  11. ADALAT-CR TABLET [Concomitant]
     Indication: HYPERTENSION
     Dosage: 20 MG, QD
     Route: 048
  12. CALBLOCK TABLETS [Concomitant]
     Indication: HYPERTENSION
     Dosage: 16 MG, QD
     Route: 048
  13. LAMICTAL [Suspect]
     Active Substance: LAMOTRIGINE
     Dosage: 300 MG, 1D
     Route: 048
     Dates: start: 20190204, end: 20190221
  14. ARGAMATE JELLY [Concomitant]
     Dosage: 25 G, TID
     Route: 048
  15. LAMICTAL [Suspect]
     Active Substance: LAMOTRIGINE
     Dosage: 150 MG, 1D
     Route: 048
     Dates: start: 20170306, end: 20170326
  16. METHYCOBAL TABLET [Concomitant]
     Dosage: 500 ?G, TID
     Route: 048
  17. MAGMITT [Concomitant]
     Active Substance: MAGNESIUM OXIDE
     Dosage: 330 MG, TID

REACTIONS (10)
  - Drug eruption [Recovered/Resolved]
  - Product use issue [Unknown]
  - Rash [Recovered/Resolved]
  - Pyrexia [Recovered/Resolved]
  - Generalised erythema [Recovered/Resolved]
  - Toxic skin eruption [Recovered/Resolved]
  - Sepsis [Recovered/Resolved]
  - Vulval disorder [Recovered/Resolved]
  - Inflammation [Recovered/Resolved]
  - Off label use [Unknown]

NARRATIVE: CASE EVENT DATE: 20161121
